FAERS Safety Report 6527765-7 (Version None)
Quarter: 2009Q4

REPORT INFORMATION
  Report Type: 
  Country: None (occurrence: None)
  Receive Date: 20091231
  Receipt Date: 20091221
  Transmission Date: 20100525
  Serious: Yes (Hospitalization)
  Sender: FDA-Public Use
  Company Number: 003557

PATIENT
  Age: 66 Year
  Sex: Male

DRUGS (4)
  1. METOLAZONE [Suspect]
     Dosage: (2.5 MG QD)
  2. FUROSEMIDE [Suspect]
     Dosage: (40 MG TID), (), (DOSE INCREASED)
  3. SPIRONOLACTONE [Suspect]
     Dosage: (12.5 MG QD)
  4. RAMIPRIL [Suspect]
     Dosage: (7.5 MG, 5MG IN THE MORNING AND 2.5 MG AT NIGHT), (DOSAGE ADJUSTED)

REACTIONS (6)
  - AZOTAEMIA [None]
  - BLOOD SODIUM DECREASED [None]
  - DEHYDRATION [None]
  - FATIGUE [None]
  - HYPOTENSION [None]
  - RENAL DISORDER [None]
